FAERS Safety Report 7062829-3 (Version None)
Quarter: 2010Q4

REPORT INFORMATION
  Report Type: 
  Country: None (occurrence: None)
  Receive Date: 20101026
  Receipt Date: 20100217
  Transmission Date: 20110411
  Serious: No
  Sender: FDA-Public Use
  Company Number: US-PFIZER INC-2010021342

PATIENT
  Sex: Female

DRUGS (4)
  1. LIPITOR [Suspect]
     Dosage: 10 MG, UNK
  2. NORVASC [Suspect]
     Dosage: UNK
  3. CLORAZEPATE DIPOTASSIUM [Suspect]
     Dosage: UNK
  4. TOPROL-XL [Suspect]
     Dosage: UNK

REACTIONS (2)
  - ALOPECIA [None]
  - BLOOD IRON DECREASED [None]
